FAERS Safety Report 21554241 (Version 1)
Quarter: 2022Q4

REPORT INFORMATION
  Report Type: Spontaneous
  Country: US (occurrence: None)
  Receive Date: 20221104
  Receipt Date: 20221104
  Transmission Date: 20230113
  Serious: Yes (Life-Threatening, Hospitalization)
  Sender: FDA-Public Use
  Company Number: US-ROCHE-3211981

PATIENT
  Age: 64 Year

DRUGS (18)
  1. VALGANCICLOVIR [Suspect]
     Active Substance: VALGANCICLOVIR
     Indication: Cytomegalovirus viraemia
     Route: 048
     Dates: start: 20220223, end: 20220418
  2. ROSUVASTATIN [Concomitant]
     Active Substance: ROSUVASTATIN
     Dates: start: 20211130
  3. ACETAMINOPHEN [Concomitant]
     Active Substance: ACETAMINOPHEN
     Dates: start: 20211128, end: 20220528
  4. ASPIRIN [Concomitant]
     Active Substance: ASPIRIN
     Dates: start: 20211128
  5. CARVEDILOL [Concomitant]
     Active Substance: CARVEDILOL
     Route: 065
     Dates: start: 20211130
  6. CINACALCET [Concomitant]
     Active Substance: CINACALCET
     Dates: start: 20211222
  7. MAGNESIUM OXIDE [Concomitant]
     Active Substance: MAGNESIUM OXIDE
     Dates: start: 20211129
  8. MYCOPHENOLATE MOFETIL [Concomitant]
     Active Substance: MYCOPHENOLATE MOFETIL
     Dates: start: 20211127
  9. PHOSPHORUS [Concomitant]
     Active Substance: PHOSPHORUS
     Dates: start: 20211201
  10. SULFAMETHOXAZOLE\TRIMETHOPRIM [Concomitant]
     Active Substance: SULFAMETHOXAZOLE\TRIMETHOPRIM
     Dates: start: 20211129
  11. TACROLIMUS [Concomitant]
     Active Substance: TACROLIMUS
     Dates: start: 20211128
  12. CHOLECALCIFEROL [Concomitant]
     Active Substance: CHOLECALCIFEROL
     Dates: start: 20211201
  13. INSULIN GLARGINE [Concomitant]
     Active Substance: INSULIN GLARGINE
     Dates: start: 20211229
  14. METFORMIN [Concomitant]
     Active Substance: METFORMIN HYDROCHLORIDE
     Dates: start: 20220214
  15. MYCOPHENOLIC ACID [Concomitant]
     Active Substance: MYCOPHENOLIC ACID
     Dates: start: 20220325, end: 20220421
  16. INSULIN GLARGINE YFGN [Concomitant]
     Dates: start: 20220211, end: 20220428
  17. DAPAGLIFLOZIN [Concomitant]
     Active Substance: DAPAGLIFLOZIN
     Dates: start: 20220415
  18. NITAZOXANIDE [Concomitant]
     Active Substance: NITAZOXANIDE
     Dates: start: 20220401, end: 20220428

REACTIONS (2)
  - Cytomegalovirus infection [Not Recovered/Not Resolved]
  - Treatment failure [Unknown]
